FAERS Safety Report 16813030 (Version 1)
Quarter: 2019Q3

REPORT INFORMATION
  Report Type: Other
  Country: US (occurrence: US)
  Receive Date: 20190916
  Receipt Date: 20190916
  Transmission Date: 20191005
  Serious: Yes (Hospitalization)
  Sender: FDA-Public Use
  Company Number: US-LEADIANT BIOSCIENCES INC-2018STPI000698

PATIENT
  Age: 78 Year
  Sex: Female

DRUGS (2)
  1. GLEOSTINE [Suspect]
     Active Substance: LOMUSTINE
     Dosage: 40 MG, UNK
  2. MATULANE [Suspect]
     Active Substance: PROCARBAZINE HYDROCHLORIDE
     Indication: GLIOBLASTOMA
     Dosage: 150 MG, DAILY ON DAYS 8 TO 21 OF CYCLE
     Route: 048
     Dates: start: 20181002, end: 20181101

REACTIONS (1)
  - Seizure [Unknown]

NARRATIVE: CASE EVENT DATE: 20181101
